FAERS Safety Report 8022378-2 (Version None)
Quarter: 2012Q1

REPORT INFORMATION
  Report Type: 
  Country: None (occurrence: None)
  Receive Date: 20120104
  Receipt Date: 20111220
  Transmission Date: 20120608
  Serious: Yes (Life-Threatening, Hospitalization, Disabling, Other)
  Sender: FDA-Public Use
  Company Number: US-ACTELION-A-US2011-54901

PATIENT

DRUGS (4)
  1. COUMADIN [Suspect]
  2. TRACLEER [Suspect]
     Indication: PULMONARY ARTERIAL HYPERTENSION
     Dosage: 125 MG, UNK
     Route: 048
     Dates: start: 20100505
  3. REVATIO [Concomitant]
  4. FLOLAN [Concomitant]

REACTIONS (7)
  - CRANIOPLASTY [None]
  - SUBDURAL HAEMORRHAGE [None]
  - CEREBRAL HAEMORRHAGE [None]
  - CRANIOTOMY [None]
  - SUBDURAL HAEMATOMA [None]
  - LOSS OF CONSCIOUSNESS [None]
  - HEADACHE [None]
